FAERS Safety Report 7361277-6 (Version None)
Quarter: 2011Q1

REPORT INFORMATION
  Report Type: 
  Country: None (occurrence: None)
  Receive Date: 20110318
  Receipt Date: 20100307
  Transmission Date: 20110831
  Serious: Yes (Other)
  Sender: FDA-Public Use
  Company Number: A0854526A

PATIENT
  Age: 31 Year
  Sex: Female
  Weight: 62.7 kg

DRUGS (3)
  1. WELLBUTRIN SR [Suspect]
     Indication: ANXIETY
     Dosage: 150MG TWICE PER DAY
     Route: 048
     Dates: start: 20100321, end: 20100401
  2. VITAMIN AND MINERAL PRENATAL SUPPLEMENT W/ FOLIC ACID CAP [Concomitant]
     Dosage: 1TAB PER DAY
     Route: 048
  3. SPIRONOLACTONE [Concomitant]
     Indication: ACNE
     Dosage: 100MG PER DAY
     Dates: end: 20100321

REACTIONS (3)
  - BLIGHTED OVUM [None]
  - ABORTION SPONTANEOUS [None]
  - DRUG EXPOSURE DURING PREGNANCY [None]
